FAERS Safety Report 4463944-0 (Version None)
Quarter: 2004Q4

REPORT INFORMATION
  Report Type: 
  Country: None (occurrence: None)
  Receive Date: 20041001
  Receipt Date: 20040819
  Transmission Date: 20050328
  Serious: Yes (Hospitalization)
  Sender: FDA-Public Use
  Company Number: DEWYE989719AUG04

PATIENT
  Age: 68 Year
  Sex: Female

DRUGS (5)
  1. ENBREL [Suspect]
     Indication: RHEUMATOID ARTHRITIS
     Dosage: UNKNOWN
     Route: 058
     Dates: start: 20011001
  2. ENBREL [Suspect]
     Route: 058
     Dates: start: 20040407
  3. METHOTREXATE [Suspect]
     Dosage: 15 MG
     Route: 058
  4. PREDNISOLONE [Suspect]
     Route: 048
  5. VOLTAREN [Concomitant]

REACTIONS (3)
  - BURSITIS INFECTIVE [None]
  - FISTULA [None]
  - WOUND INFECTION [None]
